FAERS Safety Report 26206399 (Version 1)
Quarter: 2025Q4

REPORT INFORMATION
  Report Type: Spontaneous
  Country: US (occurrence: US)
  Receive Date: 20251229
  Receipt Date: 20251229
  Transmission Date: 20260118
  Serious: No
  Sender: SANOFI AVENTIS
  Company Number: US-SA-2025SA386636

PATIENT
  Age: 10 Year
  Sex: Female

DRUGS (1)
  1. DUPIXENT [Suspect]
     Active Substance: DUPILUMAB
     Indication: Eczema
     Dosage: 200 MG, QOW
     Route: 058
     Dates: start: 202507

REACTIONS (5)
  - Cough [Recovering/Resolving]
  - Pyrexia [Recovered/Resolved]
  - Nasal congestion [Recovered/Resolved]
  - Nausea [Recovered/Resolved]
  - Headache [Recovered/Resolved]

NARRATIVE: CASE EVENT DATE: 20251214
